FAERS Safety Report 20551594 (Version 1)
Quarter: 2022Q1

REPORT INFORMATION
  Report Type: Report from Study
  Country: CO (occurrence: CO)
  Receive Date: 20220304
  Receipt Date: 20220304
  Transmission Date: 20220423
  Serious: Yes (Hospitalization, Other)
  Sender: FDA-Public Use
  Company Number: CO-BRISTOL-MYERS SQUIBB COMPANY-BMS-2022-031279

PATIENT
  Age: 46 Year
  Sex: Male
  Weight: 65 kg

DRUGS (3)
  1. ABATACEPT [Suspect]
     Active Substance: ABATACEPT
     Indication: Rheumatoid arthritis
     Dosage: 750 MILLIGRAM, Q4WK
     Route: 042
     Dates: start: 20150827
  2. NIFEDIPINE [Concomitant]
     Active Substance: NIFEDIPINE
     Indication: Tension
     Dosage: 30 MILLIGRAM, Q12H
     Route: 048
     Dates: start: 20220113
  3. PRAZOSIN [Concomitant]
     Active Substance: PRAZOSIN
     Indication: Tension
     Dosage: 1 MILLIGRAM, Q8H
     Route: 048
     Dates: start: 20220113

REACTIONS (1)
  - Myocardial infarction [Unknown]

NARRATIVE: CASE EVENT DATE: 20220224
